FAERS Safety Report 5065154-5 (Version None)
Quarter: 2006Q3

REPORT INFORMATION
  Report Type: 
  Country: None (occurrence: None)
  Receive Date: 20060725
  Receipt Date: 20060703
  Transmission Date: 20061208
  Serious: Yes (Hospitalization, Other)
  Sender: FDA-Public Use
  Company Number: DE200602003948

PATIENT
  Sex: Male

DRUGS (2)
  1. ZYPREXA [Suspect]
     Dosage: ORAL
     Route: 048
  2. LITHIUM [Concomitant]

REACTIONS (3)
  - ERECTILE DYSFUNCTION [None]
  - MICTURITION DISORDER [None]
  - WEIGHT INCREASED [None]
